FAERS Safety Report 7936881-4 (Version None)
Quarter: 2011Q4

REPORT INFORMATION
  Report Type: 
  Country: None (occurrence: None)
  Receive Date: 20111123
  Receipt Date: 20111123
  Transmission Date: 20120403
  Serious: Yes (Other)
  Sender: FDA-Public Use
  Company Number: None

PATIENT
  Age: 39 Year
  Sex: Female
  Weight: 72.574 kg

DRUGS (2)
  1. MELOXICAM [Suspect]
     Indication: MENISCUS LESION
     Dosage: 15MG
     Route: 048
  2. MELOXICAM [Suspect]
     Indication: ARTHRITIS
     Dosage: 15MG
     Route: 048

REACTIONS (10)
  - SCREAMING [None]
  - AGGRESSION [None]
  - MENTAL IMPAIRMENT [None]
  - ABNORMAL BEHAVIOUR [None]
  - CRYING [None]
  - NECK PAIN [None]
  - ANGER [None]
  - FEELING ABNORMAL [None]
  - HEADACHE [None]
  - MOOD ALTERED [None]
